FAERS Safety Report 24997704 (Version 3)
Quarter: 2025Q1

REPORT INFORMATION
  Report Type: Spontaneous
  Country: GB (occurrence: GB)
  Receive Date: 20250222
  Receipt Date: 20250305
  Transmission Date: 20250409
  Serious: Yes (Life-Threatening, Hospitalization, Other)
  Sender: ACCORD
  Company Number: GB-MLMSERVICE-20250203-PI391548-00270-1

PATIENT
  Age: 42 Year
  Sex: Female
  Weight: 66.4 kg

DRUGS (11)
  1. MYCOPHENOLATE MOFETIL [Suspect]
     Active Substance: MYCOPHENOLATE MOFETIL
     Indication: Immunosuppressant drug therapy
     Route: 048
     Dates: start: 2017, end: 2023
  2. PREDNISOLONE [Suspect]
     Active Substance: PREDNISOLONE
     Indication: Immunosuppressant drug therapy
     Dosage: 10 MG, QD
     Dates: start: 2017
  3. TACROLIMUS [Suspect]
     Active Substance: TACROLIMUS
     Indication: Immunosuppressant drug therapy
     Dosage: 4.0MG IN MORNING, 4.5MG AT NIGHT
     Route: 048
     Dates: start: 2017, end: 2023
  4. AMLODIPINE [Concomitant]
     Active Substance: AMLODIPINE BESYLATE
  5. ASPIRIN [Concomitant]
     Active Substance: ASPIRIN
  6. CANAGLIFLOZIN [Concomitant]
     Active Substance: CANAGLIFLOZIN
  7. CHOLECALCIFEROL [Concomitant]
     Active Substance: CHOLECALCIFEROL
  8. IRBESARTAN [Concomitant]
     Active Substance: IRBESARTAN
  9. LANSOPRAZOLE [Concomitant]
     Active Substance: LANSOPRAZOLE
  10. SODIUM BICARBONATE [Concomitant]
     Active Substance: SODIUM BICARBONATE
  11. PREDNISOLONE [Suspect]
     Active Substance: PREDNISOLONE
     Indication: Immunosuppressant drug therapy
     Dosage: 20 MG, QD
     Dates: start: 2023

REACTIONS (19)
  - Generalised tonic-clonic seizure [Not Recovered/Not Resolved]
  - Cerebral fungal infection [Not Recovered/Not Resolved]
  - Fungal skin infection [Not Recovered/Not Resolved]
  - Pneumonia fungal [Not Recovered/Not Resolved]
  - Hemianopia homonymous [Not Recovered/Not Resolved]
  - Partial seizures [Not Recovered/Not Resolved]
  - Headache [Not Recovered/Not Resolved]
  - Fatigue [Not Recovered/Not Resolved]
  - Hemiparesis [Not Recovered/Not Resolved]
  - Facial paresis [Not Recovered/Not Resolved]
  - Photopsia [Not Recovered/Not Resolved]
  - Tongue biting [Not Recovered/Not Resolved]
  - Postictal state [Not Recovered/Not Resolved]
  - Mass [Not Recovered/Not Resolved]
  - Muscular weakness [Not Recovered/Not Resolved]
  - Abscess [Not Recovered/Not Resolved]
  - Vasogenic cerebral oedema [Not Recovered/Not Resolved]
  - Movement disorder [Not Recovered/Not Resolved]
  - Rhinitis [Not Recovered/Not Resolved]

NARRATIVE: CASE EVENT DATE: 20230101
